FAERS Safety Report 4873623-3 (Version None)
Quarter: 2005Q4

REPORT INFORMATION
  Report Type: 
  Country: None (occurrence: None)
  Receive Date: 20051201
  Receipt Date: 20050823
  Transmission Date: 20060501
  Serious: No
  Sender: FDA-Public Use
  Company Number: 2005PV001499

PATIENT
  Age: 77 Year
  Sex: Female
  Weight: 85.7298 kg

DRUGS (2)
  1. BYETTA [Suspect]
     Indication: DIABETES MELLITUS NON-INSULIN-DEPENDENT
     Dosage: 5 MCG;BID;SC
     Route: 058
     Dates: start: 20050820
  2. GLUCOVANCE [Concomitant]

REACTIONS (6)
  - BLOOD GLUCOSE DECREASED [None]
  - DIZZINESS [None]
  - HEADACHE [None]
  - INJECTION SITE HAEMORRHAGE [None]
  - NAUSEA [None]
  - PALLOR [None]
